FAERS Safety Report 4466666-5 (Version None)
Quarter: 2004Q4

REPORT INFORMATION
  Report Type: 
  Country: None (occurrence: None)
  Receive Date: 20041006
  Receipt Date: 20040924
  Transmission Date: 20050328
  Serious: Yes (Other)
  Sender: FDA-Public Use
  Company Number: JP-ROCHE-381302

PATIENT
  Sex: Female
  Weight: 3.3 kg

DRUGS (1)
  1. RIVOTRIL [Suspect]
     Indication: EPILEPSY
     Dates: end: 19950624

REACTIONS (3)
  - CAESAREAN SECTION [None]
  - DRUG EXPOSURE DURING PREGNANCY [None]
  - NEONATAL ASPHYXIA [None]
